FAERS Safety Report 7077007 (Version 2)
Quarter: 2014Q3

REPORT INFORMATION
  Report Type: Spontaneous
  Country: US (occurrence: None)
  Receive Date: 20090803
  Receipt Date: 20140910
  Transmission Date: 20150326
  Serious: Yes (Hospitalization, Other)
  Sender: FDA-Public Use
  Company Number: 2009S1005956

PATIENT
  Age: 73 Year
  Sex: Female
  Weight: 77 kg

DRUGS (3)
  1. LISINOPRIL. [Concomitant]
     Active Substance: LISINOPRIL
  2. PLAVIX [Concomitant]
     Active Substance: CLOPIDOGREL BISULFATE
  3. PHOSPHO-SODA [Suspect]
     Active Substance: SODIUM PHOSPHATE, DIBASIC\SODIUM PHOSPHATE, MONOBASIC
     Indication: COLONOSCOPY
     Dosage: ; PO
     Route: 048
     Dates: start: 20080518

REACTIONS (6)
  - Headache [None]
  - Haemorrhoids [None]
  - Hypertensive emergency [None]
  - Hypertension [None]
  - Renal failure [None]
  - Renal failure chronic [None]
